FAERS Safety Report 13132983 (Version 1)
Quarter: 2017Q1

REPORT INFORMATION
  Report Type: Spontaneous
  Country: RU (occurrence: RU)
  Receive Date: 20170120
  Receipt Date: 20170120
  Transmission Date: 20170428
  Serious: Yes (Hospitalization)
  Sender: FDA-Public Use
  Company Number: RU-ASTRAZENECA-2017SE05157

PATIENT
  Age: 67 Year
  Sex: Female
  Weight: 85 kg

DRUGS (6)
  1. FORXIGA [Suspect]
     Active Substance: DAPAGLIFLOZIN
     Indication: TYPE 2 DIABETES MELLITUS
     Dosage: 10 MG DAILY WITH A 7 DAYS INTERRUPTION
     Route: 048
     Dates: start: 201603, end: 20161226
  2. INDAPAMIDE. [Concomitant]
     Active Substance: INDAPAMIDE
  3. ENALAPRIL [Concomitant]
     Active Substance: ENALAPRIL
  4. CARDIASK [Concomitant]
     Active Substance: ASPIRIN
  5. FORXIGA [Suspect]
     Active Substance: DAPAGLIFLOZIN
     Indication: TYPE 2 DIABETES MELLITUS
     Route: 048
     Dates: start: 201701
  6. CINNARIZINE [Concomitant]
     Active Substance: CINNARIZINE

REACTIONS (2)
  - Hypertensive crisis [Recovered/Resolved]
  - Inappropriate schedule of drug administration [Unknown]

NARRATIVE: CASE EVENT DATE: 20161226
